FAERS Safety Report 21305600 (Version 1)
Quarter: 2022Q3

REPORT INFORMATION
  Report Type: Spontaneous
  Country: US (occurrence: US)
  Receive Date: 20220908
  Receipt Date: 20220908
  Transmission Date: 20221027
  Serious: No
  Sender: FDA-Public Use
  Company Number: US-JNJFOC-20220840246

PATIENT
  Sex: Male

DRUGS (2)
  1. MENS ROGAINE EXTRA STRENGTH [Suspect]
     Active Substance: MINOXIDIL
     Indication: Alopecia
     Dosage: PUT ON FINGERTIP - SMALL AMOUNT
     Route: 061
     Dates: start: 20220805
  2. MENS ROGAINE EXTRA STRENGTH [Suspect]
     Active Substance: MINOXIDIL
     Dosage: PUT ON FINGERTIP - SMALL AMOUNT
     Route: 061
     Dates: start: 20220806, end: 202208

REACTIONS (6)
  - Application site erosion [Recovering/Resolving]
  - Application site erythema [Recovering/Resolving]
  - Application site pain [Recovering/Resolving]
  - Application site dryness [Recovering/Resolving]
  - Inappropriate schedule of product administration [Unknown]
  - Incorrect dose administered [Unknown]

NARRATIVE: CASE EVENT DATE: 20220805
